FAERS Safety Report 5961082-9 (Version None)
Quarter: 2008Q4

REPORT INFORMATION
  Report Type: 
  Country: None (occurrence: None)
  Receive Date: 20081119
  Receipt Date: 20081108
  Transmission Date: 20090506
  Serious: Yes (Other)
  Sender: FDA-Public Use
  Company Number: CHPA2008US19474

PATIENT
  Age: 13 Year
  Sex: Female

DRUGS (1)
  1. BENEFIBER W/WHEAT DEXTRIN (NCH) (WHEAT DEXTRIN) POWDER [Suspect]
     Indication: BOWEL MOVEMENT IRREGULARITY
     Dosage: 2 TSP, QD, ORAL
     Route: 048
     Dates: start: 20081001

REACTIONS (1)
  - URTICARIA [None]
